FAERS Safety Report 8335112-3 (Version None)
Quarter: 2012Q2

REPORT INFORMATION
  Report Type: 
  Country: None (occurrence: None)
  Receive Date: 20120503
  Receipt Date: 20120426
  Transmission Date: 20120825
  Serious: Yes (Other)
  Sender: FDA-Public Use
  Company Number: US-INCYTE CORPORATION-2012IN000688

PATIENT
  Sex: Female

DRUGS (3)
  1. JAKAFI [Suspect]
     Indication: MYELOFIBROSIS
     Dosage: 10 MG, QD
     Route: 048
     Dates: start: 20120408
  2. NORVASC [Concomitant]
  3. ALLOPURINOL [Concomitant]

REACTIONS (4)
  - ABDOMINAL PAIN UPPER [None]
  - HEPATOMEGALY [None]
  - VOMITING [None]
  - DIARRHOEA [None]
